FAERS Safety Report 18840629 (Version 1)
Quarter: 2021Q1

REPORT INFORMATION
  Report Type: Other
  Country: PL (occurrence: PL)
  Receive Date: 20210204
  Receipt Date: 20210204
  Transmission Date: 20210419
  Serious: Yes (Other)
  Sender: FDA-Public Use
  Company Number: PL-CELLTRION INC.-2021PL001124

PATIENT

DRUGS (2)
  1. NATRIUM CHLORATUM 9 MG/ML [Suspect]
     Active Substance: SODIUM CHLORIDE
     Indication: CROHN^S DISEASE
     Dosage: UNK
     Route: 042
     Dates: start: 20170711, end: 20170711
  2. REMSIMA [Suspect]
     Active Substance: INFLIXIMAB
     Indication: CROHN^S DISEASE
     Dosage: 100 MG
     Dates: start: 20170711, end: 20170711

REACTIONS (2)
  - Psoriasis [Unknown]
  - Underdose [Unknown]

NARRATIVE: CASE EVENT DATE: 20171023
